FAERS Safety Report 24843747 (Version 1)
Quarter: 2025Q1

REPORT INFORMATION
  Report Type: Spontaneous
  Country: US (occurrence: US)
  Receive Date: 20250115
  Receipt Date: 20250115
  Transmission Date: 20250409
  Serious: Yes (Life-Threatening, Hospitalization, Other)
  Sender: HIKMA
  Company Number: US-MLMSERVICE-20241227-PI324161-00271-1

PATIENT
  Age: 29 Year
  Sex: Male

DRUGS (4)
  1. DAUNORUBICIN [Suspect]
     Active Substance: DAUNORUBICIN
     Indication: Acute lymphocytic leukaemia
     Route: 065
  2. PEGASPARGASE [Suspect]
     Active Substance: PEGASPARGASE
     Indication: Acute lymphocytic leukaemia
     Route: 065
  3. PREDNISONE [Suspect]
     Active Substance: PREDNISONE
     Indication: Acute lymphocytic leukaemia
     Route: 065
  4. VINCRISTINE [Suspect]
     Active Substance: VINCRISTINE
     Indication: Acute lymphocytic leukaemia
     Route: 065

REACTIONS (7)
  - Liver injury [Recovering/Resolving]
  - Acute hepatic failure [Recovering/Resolving]
  - Shock [Recovering/Resolving]
  - Renal injury [Recovering/Resolving]
  - Venoocclusive liver disease [Recovering/Resolving]
  - Hepatic encephalopathy [Recovering/Resolving]
  - Hepatorenal failure [Recovering/Resolving]
